FAERS Safety Report 13514581 (Version 1)
Quarter: 2017Q2

REPORT INFORMATION
  Report Type: Spontaneous
  Country: FR (occurrence: FR)
  Receive Date: 20170504
  Receipt Date: 20170504
  Transmission Date: 20170830
  Serious: Yes (Hospitalization)
  Sender: FDA-Public Use
  Company Number: FR-PFIZER INC-2015150173

PATIENT
  Age: 49 Year
  Sex: Male

DRUGS (3)
  1. AMPHOTERICIN B. [Concomitant]
     Active Substance: AMPHOTERICIN B
     Indication: FUSARIUM INFECTION
     Dosage: UNK
     Route: 047
     Dates: start: 20150326
  2. VFEND [Suspect]
     Active Substance: VORICONAZOLE
     Indication: FUSARIUM INFECTION
     Dosage: 200 MG, 2X/DAY
     Route: 048
     Dates: start: 20150330, end: 20150415
  3. CICLOSPORINE [Concomitant]
     Active Substance: CYCLOSPORINE
     Indication: APLASTIC ANAEMIA
     Dosage: 100 MG, 2X/DAY
     Dates: start: 201406, end: 20150330

REACTIONS (2)
  - Acute generalised exanthematous pustulosis [Recovered/Resolved]
  - Rash pustular [Recovered/Resolved]

NARRATIVE: CASE EVENT DATE: 20150415
